FAERS Safety Report 7776366-1 (Version None)
Quarter: 2011Q3

REPORT INFORMATION
  Report Type: 
  Country: None (occurrence: None)
  Receive Date: 20110921
  Receipt Date: 20110921
  Transmission Date: 20111222
  Serious: Yes (Other)
  Sender: FDA-Public Use
  Company Number: None

PATIENT
  Sex: Female
  Weight: 55.3388 kg

DRUGS (2)
  1. NITROGLYCERIN [Suspect]
     Indication: CORONARY ARTERY DISEASE
     Dosage: 0.4MG/HR DAILY TRANSDERMAL
     Route: 062
     Dates: start: 20110601
  2. NITROGLYCERIN [Suspect]
     Indication: MYOCARDIAL INFARCTION
     Dosage: 0.4MG/HR DAILY TRANSDERMAL
     Route: 062
     Dates: start: 20110601

REACTIONS (2)
  - MALAISE [None]
  - DIZZINESS [None]
